FAERS Safety Report 12785602 (Version 1)
Quarter: 2016Q3

REPORT INFORMATION
  Report Type: Spontaneous
  Country: US (occurrence: US)
  Receive Date: 20160927
  Receipt Date: 20160927
  Transmission Date: 20161109
  Serious: Yes (Other)
  Sender: FDA-Public Use
  Company Number: US-PFIZER INC-3237001

PATIENT
  Age: 30 Year
  Sex: Female

DRUGS (5)
  1. BUPIVACAINE HYDROCHLORIDE/EPINEPHRINE [Suspect]
     Active Substance: BUPIVACAINE HYDROCHLORIDE\EPINEPHRINE
     Indication: PAIN
     Dosage: 10 ML, 0.125 %, LOADING DOSE
  2. BUPIVACAINE HYDROCHLORIDE/EPINEPHRINE [Suspect]
     Active Substance: BUPIVACAINE HYDROCHLORIDE\EPINEPHRINE
     Dosage: 14 ML, 0.044 %, FREQ: 1 HOUR ; INTERVAL: 1
     Route: 041
  3. MORPHINE SULFATE. [Suspect]
     Active Substance: MORPHINE SULFATE
     Indication: PAIN
     Dosage: 2 MG, FREQ: 1 MINUTE; INTERVAL: 15
     Route: 042
  4. FENTANYL CITRATE. [Suspect]
     Active Substance: FENTANYL CITRATE
     Indication: PAIN
     Dosage: 14 ML, 1.25 MCG/ML, FREQ: 1 HOUR ; INTERVAL: 1
     Route: 041
  5. FENTANYL CITRATE. [Suspect]
     Active Substance: FENTANYL CITRATE
     Dosage: 5 MCG/ML, LOADING DOSE

REACTIONS (4)
  - Maternal exposure during pregnancy [None]
  - Exposure during pregnancy [Unknown]
  - Hypoxia [Recovered/Resolved]
  - Inadequate analgesia [None]
